FAERS Safety Report 8388564-7 (Version None)
Quarter: 2012Q2

REPORT INFORMATION
  Report Type: 
  Country: None (occurrence: None)
  Receive Date: 20120525
  Receipt Date: 20120514
  Transmission Date: 20120825
  Serious: Yes (Other)
  Sender: FDA-Public Use
  Company Number: FR-AMGEN-FRASP2011042304

PATIENT
  Age: 39 Year
  Sex: Female

DRUGS (2)
  1. PAROXETINE [Concomitant]
     Dosage: UNKNOWN
  2. ENBREL [Suspect]
     Indication: RHEUMATOID ARTHRITIS
     Dosage: 50 MG, QWK
     Dates: start: 20110101

REACTIONS (9)
  - NAUSEA [None]
  - BRONCHOSPASM [None]
  - MIGRAINE [None]
  - DRUG DOSE OMISSION [None]
  - AMENORRHOEA [None]
  - ARTHRITIS [None]
  - PYREXIA [None]
  - MALAISE [None]
  - URINARY TRACT INFECTION [None]
